FAERS Safety Report 7471295-5 (Version None)
Quarter: 2011Q2

REPORT INFORMATION
  Report Type: 
  Country: None (occurrence: None)
  Receive Date: 20110510
  Receipt Date: 20100511
  Transmission Date: 20111010
  Serious: No
  Sender: FDA-Public Use
  Company Number: US-BAUSCH-2010BL002501

PATIENT
  Age: 80 Year
  Sex: Male

DRUGS (2)
  1. TIMOLOL [Concomitant]
     Indication: INTRAOCULAR PRESSURE INCREASED
  2. FLUOCINOLONE ACETONIDE [Suspect]
     Indication: UVEITIS
     Route: 047
     Dates: start: 20100405

REACTIONS (2)
  - CONDITION AGGRAVATED [None]
  - MACULAR OEDEMA [None]
